FAERS Safety Report 6603335-7 (Version None)
Quarter: 2010Q1

REPORT INFORMATION
  Report Type: 
  Country: None (occurrence: None)
  Receive Date: 20100226
  Receipt Date: 20090204
  Transmission Date: 20100710
  Serious: No
  Sender: FDA-Public Use
  Company Number: A0766865A

PATIENT
  Age: 3 Year
  Sex: Female

DRUGS (2)
  1. VALTREX [Suspect]
     Indication: HERPES OPHTHALMIC
     Dosage: 500MG THREE TIMES PER DAY
     Route: 048
     Dates: start: 19980101
  2. VIROPTIC [Concomitant]

REACTIONS (1)
  - DRUG INEFFECTIVE [None]
